FAERS Safety Report 10258063 (Version 2)
Quarter: 2014Q3

REPORT INFORMATION
  Report Type: Spontaneous
  Country: TR (occurrence: TR)
  Receive Date: 20140625
  Receipt Date: 20140722
  Transmission Date: 20150326
  Serious: Yes (Other)
  Sender: FDA-Public Use
  Company Number: CHPA2014TR008574

PATIENT
  Age: 43 Year
  Sex: Male

DRUGS (1)
  1. NICOTINELL FRUIT NICOTINE GUM [Suspect]
     Active Substance: NICOTINE
     Indication: SMOKING CESSATION THERAPY
     Dosage: 20 DF, QD
     Dates: start: 2013

REACTIONS (2)
  - Dependence [Not Recovered/Not Resolved]
  - Oral pain [Recovered/Resolved]
